FAERS Safety Report 9161958 (Version 1)
Quarter: 2013Q1

REPORT INFORMATION
  Report Type: Spontaneous
  Country: US (occurrence: None)
  Receive Date: 20130225
  Receipt Date: 20130225
  Transmission Date: 20140127
  Serious: Yes (Hospitalization, Disabling)
  Sender: FDA-Public Use
  Company Number: 145585

PATIENT
  Age: 56 Year
  Sex: Male

DRUGS (1)
  1. CERUBIDINE [Suspect]
     Indication: ACUTE MYELOID LEUKAEMIA
     Route: 042
     Dates: start: 20110505, end: 20110507

REACTIONS (2)
  - Pneumonia [None]
  - Zygomycosis [None]
